FAERS Safety Report 20052068 (Version 1)
Quarter: 2021Q4

REPORT INFORMATION
  Report Type: Other
  Country: US (occurrence: None)
  Receive Date: 20211110
  Receipt Date: 20211110
  Transmission Date: 20220303
  Serious: No
  Sender: FDA-Public Use
  Company Number: US-ROCHE-2949547

PATIENT
  Sex: Female
  Weight: 81.720 kg

DRUGS (6)
  1. OCREVUS [Suspect]
     Active Substance: OCRELIZUMAB
     Indication: Relapsing-remitting multiple sclerosis
     Route: 042
     Dates: start: 2019, end: 202104
  2. OCREVUS [Suspect]
     Active Substance: OCRELIZUMAB
     Indication: Multiple sclerosis
  3. AMPYRA [Concomitant]
     Active Substance: DALFAMPRIDINE
     Dosage: YES
     Route: 048
  4. TOLTERODINE [Concomitant]
     Active Substance: TOLTERODINE
     Indication: Micturition urgency
     Dosage: YES
     Route: 048
  5. CYCLOBENZAPRINE [Concomitant]
     Active Substance: CYCLOBENZAPRINE
     Dosage: PRN ;ONGOING: YES
     Route: 048
  6. BACLOFEN [Concomitant]
     Active Substance: BACLOFEN
     Dosage: PRN ;ONGOING: YES
     Route: 048

REACTIONS (4)
  - COVID-19 [Recovered/Resolved]
  - Immunodeficiency [Not Recovered/Not Resolved]
  - Tooth infection [Not Recovered/Not Resolved]
  - Vertigo [Recovered/Resolved]

NARRATIVE: CASE EVENT DATE: 20210101
